FAERS Safety Report 17861008 (Version 1)
Quarter: 2020Q2

REPORT INFORMATION
  Report Type: Spontaneous
  Country: US (occurrence: US)
  Receive Date: 20200604
  Receipt Date: 20200604
  Transmission Date: 20200714
  Serious: Yes (Other)
  Sender: FDA-Public Use
  Company Number: None

PATIENT
  Age: 30 Year
  Sex: Male
  Weight: 118.1 kg

DRUGS (6)
  1. TOCILIZUMAB 400MG IVPD [Concomitant]
     Dates: start: 20200528, end: 20200528
  2. ACETAMINOPHEN 1000MG IVPB Q6H PRN [Concomitant]
     Dates: start: 20200523
  3. METHYLPREDNISOLONE 40MG IV Q8H [Concomitant]
     Dates: start: 20200527, end: 20200528
  4. METHYLPREDNISOLONE 60MG IV Q8H [Concomitant]
     Dates: start: 20200524, end: 20200525
  5. REMDESIVIR. [Suspect]
     Active Substance: REMDESIVIR
     Indication: COVID-19
     Route: 042
     Dates: start: 20200523, end: 20200531
  6. OXYCODONE/ACETAMINOPHEN 5MG/325MG Q6H PRN [Concomitant]
     Dates: start: 20200523

REACTIONS (1)
  - Transaminases increased [None]

NARRATIVE: CASE EVENT DATE: 20200531
